FAERS Safety Report 4405472-4 (Version None)
Quarter: 2004Q3

REPORT INFORMATION
  Report Type: 
  Country: None (occurrence: None)
  Receive Date: 20040723
  Receipt Date: 20030908
  Transmission Date: 20050211
  Serious: No
  Sender: FDA-Public Use
  Company Number: US-GLAXOSMITHKLINE-A0425059A

PATIENT
  Age: 79 Year
  Sex: Female

DRUGS (7)
  1. AVANDIA [Suspect]
     Dosage: 12MG PER DAY
     Route: 048
  2. TOPROL-XL [Concomitant]
  3. AVAPRO [Concomitant]
  4. LIPITOR [Concomitant]
  5. ASPIRIN [Concomitant]
  6. AMBIEN [Concomitant]
  7. WATER PILL [Concomitant]

REACTIONS (3)
  - HEADACHE [None]
  - INSOMNIA [None]
  - JOINT SWELLING [None]
